FAERS Safety Report 10221054 (Version 1)
Quarter: 2014Q2

REPORT INFORMATION
  Report Type: Spontaneous
  Country: US (occurrence: None)
  Receive Date: 20140605
  Receipt Date: 20140605
  Transmission Date: 20141212
  Serious: Yes (Life-Threatening)
  Sender: FDA-Public Use
  Company Number: None

PATIENT
  Age: 54 Year
  Sex: Female
  Weight: 140 kg

DRUGS (10)
  1. LISINOPRIL HCTZ 20/12.5MG [Suspect]
     Indication: HYPERTENSION
     Dosage: 1 TAB QD ORAL
     Route: 048
  2. PRAVASTATIN [Concomitant]
  3. NORVASC [Concomitant]
  4. LASIX [Concomitant]
  5. METFORMIN [Concomitant]
  6. QVAR [Concomitant]
  7. IBUPROFEN [Concomitant]
  8. ALBUTEROL [Concomitant]
  9. POTASSIUM CHLORIDE [Concomitant]
  10. CARVEDILOL [Concomitant]

REACTIONS (1)
  - Angioedema [None]
